FAERS Safety Report 23301899 (Version 1)
Quarter: 2023Q4

REPORT INFORMATION
  Report Type: Other
  Country: None (occurrence: US)
  Receive Date: 20231215
  Receipt Date: 20231215
  Transmission Date: 20240109
  Serious: Yes (Life-Threatening)
  Sender: FDA-Public Use
  Company Number: US-B.Braun Medical Inc.-2149376

PATIENT

DRUGS (2)
  1. DEXTROSE [Suspect]
     Active Substance: DEXTROSE\DEXTROSE MONOHYDRATE
     Indication: Hypoglycaemia
  2. LACTATED RINGERS SOLUTION [Suspect]
     Active Substance: CALCIUM CHLORIDE\POTASSIUM CHLORIDE\SODIUM CHLORIDE\SODIUM LACTATE

REACTIONS (3)
  - Brain oedema [None]
  - Brain herniation [None]
  - Drug ineffective for unapproved indication [None]
